FAERS Safety Report 9459703 (Version 1)
Quarter: 2013Q3

REPORT INFORMATION
  Report Type: Spontaneous
  Country: US (occurrence: US)
  Receive Date: 20130815
  Receipt Date: 20130815
  Transmission Date: 20140515
  Serious: No
  Sender: FDA-Public Use
  Company Number: US-PFIZER INC-2013233068

PATIENT
  Age: 72 Year
  Sex: Female

DRUGS (4)
  1. DETROL LA [Suspect]
     Indication: INCONTINENCE
     Dosage: UNK
  2. MUCINEX [Suspect]
     Indication: SINUSITIS
     Dosage: UNK
  3. MUCINEX [Suspect]
     Indication: NASOPHARYNGITIS
  4. OXYBUTYNIN [Suspect]
     Indication: INCONTINENCE
     Dosage: UNK
     Dates: start: 2013, end: 20130807

REACTIONS (5)
  - Dry mouth [Unknown]
  - Dysphagia [Unknown]
  - Blood creatinine increased [Unknown]
  - Pollakiuria [Unknown]
  - Rash [Unknown]
